FAERS Safety Report 4665119-9 (Version None)
Quarter: 2005Q2

REPORT INFORMATION
  Report Type: 
  Country: None (occurrence: None)
  Receive Date: 20050517
  Receipt Date: 20050504
  Transmission Date: 20051028
  Serious: Yes (Hospitalization, Other)
  Sender: FDA-Public Use
  Company Number: 2004097060

PATIENT
  Age: 46 Year
  Sex: Male

DRUGS (2)
  1. AMPICILLIN SODIUM/SULBACTAM SODIUM [Suspect]
     Indication: BONE INFECTION
     Dosage: 3.222 MG, INTRAVENOUS
     Route: 042
     Dates: start: 20020320, end: 20020323
  2. FENTANYL [Concomitant]

REACTIONS (16)
  - DEPRESSION [None]
  - DIARRHOEA [None]
  - DIET REFUSAL [None]
  - DISORIENTATION [None]
  - DIZZINESS [None]
  - FACE OEDEMA [None]
  - FALL [None]
  - FEELING DRUNK [None]
  - HALLUCINATION [None]
  - HEADACHE [None]
  - MEMORY IMPAIRMENT [None]
  - NAUSEA [None]
  - PARAESTHESIA [None]
  - REFUSAL OF TREATMENT BY PATIENT [None]
  - TREMOR [None]
  - VISUAL DISTURBANCE [None]
